FAERS Safety Report 5536049-5 (Version None)
Quarter: 2007Q4

REPORT INFORMATION
  Report Type: 
  Country: None (occurrence: None)
  Receive Date: 20071204
  Receipt Date: 20071124
  Transmission Date: 20080405
  Serious: Yes (Other)
  Sender: FDA-Public Use
  Company Number: 2007SP006457

PATIENT
  Age: 53 Year
  Sex: Male
  Weight: 71.2147 kg

DRUGS (3)
  1. PEG-INTRON [Suspect]
     Indication: HEPATITIS C
     Dosage: 120 MCG; QW; SC, 120 MCG; QW; SC
     Route: 058
     Dates: start: 20070109, end: 20070113
  2. PEG-INTRON [Suspect]
     Indication: HEPATITIS C
     Dosage: 120 MCG; QW; SC, 120 MCG; QW; SC
     Route: 058
     Dates: start: 20070717
  3. REBETOL [Suspect]
     Indication: HEPATITIS C
     Dosage: 1000 MG; QD; PO
     Route: 048
     Dates: start: 20070109, end: 20070113

REACTIONS (28)
  - ALOPECIA [None]
  - ANOREXIA [None]
  - ASTHENIA [None]
  - CHILLS [None]
  - DEPRESSION [None]
  - DIARRHOEA [None]
  - DRUG HYPERSENSITIVITY [None]
  - DYSGEUSIA [None]
  - FATIGUE [None]
  - FEELING HOT [None]
  - FULL BLOOD COUNT DECREASED [None]
  - GASTRIC HAEMORRHAGE [None]
  - HAEMATEMESIS [None]
  - HEADACHE [None]
  - HYPERHIDROSIS [None]
  - INJECTION SITE DISCOLOURATION [None]
  - INSOMNIA [None]
  - NAUSEA [None]
  - ORAL DISORDER [None]
  - ORAL INTAKE REDUCED [None]
  - PAIN [None]
  - PHARYNGOLARYNGEAL PAIN [None]
  - PLATELET COUNT DECREASED [None]
  - RASH [None]
  - SCAR [None]
  - SOMNOLENCE [None]
  - STEVENS-JOHNSON SYNDROME [None]
  - WEIGHT DECREASED [None]
